FAERS Safety Report 11995967 (Version 1)
Quarter: 2016Q1

REPORT INFORMATION
  Report Type: Spontaneous
  Country: US (occurrence: US)
  Receive Date: 20160203
  Receipt Date: 20160203
  Transmission Date: 20160526
  Serious: Yes (Hospitalization)
  Sender: FDA-Public Use
  Company Number: US-BAYER-2016-017180

PATIENT

DRUGS (2)
  1. BAYER GENUINE ASPIRIN [Suspect]
     Active Substance: ASPIRIN
     Indication: MYOCARDIAL INFARCTION
     Dosage: 3 DOSE FORMS THAT DAY
     Dates: start: 2013
  2. BAYER LOW DOSE [Suspect]
     Active Substance: ASPIRIN
     Dosage: 81 MG EVERY DAY

REACTIONS (5)
  - Myocardial infarction [None]
  - Heart rate irregular [None]
  - Extra dose administered [None]
  - Drug effect incomplete [None]
  - Product used for unknown indication [None]

NARRATIVE: CASE EVENT DATE: 2013
